FAERS Safety Report 8101258-8 (Version None)
Quarter: 2012Q1

REPORT INFORMATION
  Report Type: 
  Country: None (occurrence: None)
  Receive Date: 20120129
  Receipt Date: 20110919
  Transmission Date: 20120608
  Serious: No
  Sender: FDA-Public Use
  Company Number: US-ABBOTT-11P-163-0856230-00

PATIENT
  Sex: Male

DRUGS (1)
  1. HUMIRA [Suspect]
     Indication: PSORIASIS
     Dosage: INITIAL DOSE
     Dates: start: 20110914

REACTIONS (4)
  - FATIGUE [None]
  - FEELING DRUNK [None]
  - ASTHENOPIA [None]
  - FEELING ABNORMAL [None]
